FAERS Safety Report 25998303 (Version 1)
Quarter: 2025Q4

REPORT INFORMATION
  Report Type: Report from Study
  Country: CA (occurrence: CA)
  Receive Date: 20251105
  Receipt Date: 20251105
  Transmission Date: 20260118
  Serious: Yes (Hospitalization)
  Sender: TEVA
  Company Number: CA-TEVA-VS-3388472

PATIENT
  Age: 43 Year
  Sex: Female

DRUGS (3)
  1. AMOXICILLIN [Suspect]
     Active Substance: AMOXICILLIN
     Indication: Product used for unknown indication
     Dosage: DOSE FORM: NOT SPECIFIED
     Route: 065
  2. REMICADE [Suspect]
     Active Substance: INFLIXIMAB
     Indication: Crohn^s disease
     Dosage: DOSE FORM: POWDER FOR SOLUTION INTRAVENOUS, ROUTE OF ADMINISTRATION: INTRAVENOUS DRIP
     Route: 065
  3. REMICADE [Suspect]
     Active Substance: INFLIXIMAB
     Indication: Crohn^s disease
     Dosage: ROUTE OF ADMINISTRATION: INTRAVENOUS DRIP
     Route: 065

REACTIONS (3)
  - Abdominal abscess [Unknown]
  - Adverse event [Unknown]
  - Drug resistance [Unknown]
